FAERS Safety Report 6100858-4 (Version None)
Quarter: 2009Q1

REPORT INFORMATION
  Report Type: 
  Country: None (occurrence: None)
  Receive Date: 20090223
  Receipt Date: 20090211
  Transmission Date: 20090719
  Serious: Yes (Other)
  Sender: FDA-Public Use
  Company Number: WAES 0902USA02082

PATIENT
  Age: 6 Year
  Sex: Male

DRUGS (3)
  1. COZAAR [Suspect]
     Indication: MARFAN'S SYNDROME
     Dosage: 8 MG/DAILY/PO
     Route: 048
     Dates: start: 20090203, end: 20090209
  2. VIGAMOX [Concomitant]
  3. PREDNISOLONE [Concomitant]

REACTIONS (3)
  - FLUSHING [None]
  - HYPERSENSITIVITY [None]
  - PALPITATIONS [None]
